FAERS Safety Report 4489516-X (Version None)
Quarter: 2004Q4

REPORT INFORMATION
  Report Type: 
  Country: None (occurrence: None)
  Receive Date: 20041028
  Receipt Date: 20041015
  Transmission Date: 20050328
  Serious: Yes (Hospitalization, Other)
  Sender: FDA-Public Use
  Company Number: HQWYE970305AUG04

PATIENT
  Age: 52 Year
  Sex: Female

DRUGS (21)
  1. OROKEN            (CEFIXIME) [Suspect]
     Dosage: 400 MG DAILY ORAL
     Route: 048
     Dates: start: 20040527, end: 20040529
  2. FUNGIZONE [Suspect]
     Dosage: ORAL
     Route: 048
     Dates: start: 20040503, end: 20040531
  3. LEXOMIL        (BROMAZEPAM) [Suspect]
     Dosage: 25 U DAILY ORAL
     Route: 048
     Dates: start: 20040521, end: 20040604
  4. VANCOMYCIN [Suspect]
     Dosage: INTRAVENOUS
     Route: 042
     Dates: start: 20040501, end: 20040527
  5. VALACYCLOVIR HCL [Suspect]
     Dosage: 1 G DAILY ORAL
     Route: 048
     Dates: start: 20040527, end: 20040527
  6. ZOVIRAX [Suspect]
     Dosage: ORAL
     Route: 048
     Dates: start: 20040512, end: 20040527
  7. TRAMADOL HCL [Concomitant]
  8. LASIX [Concomitant]
  9. ROCEPHIN [Concomitant]
  10. BLOOD CELLS, PACKED HUMAN [Concomitant]
  11. LEVOFLOXACIN [Suspect]
  12. ZYLORIC (ALLOPURINOL) [Concomitant]
  13. TIENAM (CILASTATIN/IMIPENEM) [Concomitant]
  14. OMEPRAZOLE [Concomitant]
  15. SOLU-MEDROL [Concomitant]
  16. POLARAMINE [Concomitant]
  17. PLITICAN    (ALIZAPRIDE HYDROCHLORIDE) [Concomitant]
  18. KYTRIL [Concomitant]
  19. ZAVEDOS (IDARUBICIN HYDROCHLORIDE) [Concomitant]
  20. CYTARABINE [Concomitant]
  21. ATARAX [Concomitant]

REACTIONS (5)
  - DERMATITIS EXFOLIATIVE [None]
  - GRAFT VERSUS HOST DISEASE [None]
  - HYPERSENSITIVITY [None]
  - PRURIGO [None]
  - RASH PAPULAR [None]
